FAERS Safety Report 6697663-7 (Version None)
Quarter: 2010Q2

REPORT INFORMATION
  Report Type: 
  Country: None (occurrence: None)
  Receive Date: 20100423
  Receipt Date: 20100329
  Transmission Date: 20101027
  Serious: Yes (Other)
  Sender: FDA-Public Use
  Company Number: 009701

PATIENT
  Sex: Female

DRUGS (25)
  1. ZYRTEC [Suspect]
     Indication: HYPERSENSITIVITY
     Dosage: (10 MG QD ORAL)
     Route: 048
     Dates: start: 20090101
  2. LORTAB [Suspect]
     Dosage: (ORAL)
     Route: 048
  3. GABAPENTIN [Suspect]
     Indication: FIBROMYALGIA
     Dosage: (2 DF TID ORAL)
     Route: 048
     Dates: start: 20040101
  4. VICODIN [Suspect]
     Indication: ARTHRALGIA
     Dosage: (7.5 MG/ 325 MG EVERY FOUR HOURS ORAL)
     Route: 048
     Dates: start: 20060101
  5. ZANAFLEX [Suspect]
     Indication: MUSCLE SPASMS
     Dosage: (2 MG BID ORAL)
     Route: 048
     Dates: start: 20090101
  6. DIOVAN [Suspect]
     Indication: HYPERTENSION
     Dosage: (160 MG ORAL)
     Route: 048
     Dates: start: 20020101
  7. BUPROPION HCL [Suspect]
     Indication: DEPRESSION
     Dosage: ( 300 MG ORAL)
     Route: 048
  8. LOZOL [Suspect]
     Indication: FLUID RETENTION
     Dosage: (1.25 MG ORAL)
     Route: 048
     Dates: start: 20020101
  9. METFORMIN [Suspect]
     Indication: DIABETES MELLITUS
     Dosage: (500 MG ORAL)
     Route: 048
  10. SITAGLIPTIN [Suspect]
     Indication: DIABETES MELLITUS
     Dosage: (50/500 MG DAILY ORAL)
     Route: 048
  11. CARAFATE [Suspect]
     Dosage: (1 G BID ORAL)
     Route: 048
  12. AGGRENOX [Suspect]
     Indication: ARTERIAL DISORDER
     Dosage: (ORAL)
     Route: 048
     Dates: start: 20091201
  13. AGGRENOX [Suspect]
     Indication: GASTROOESOPHAGEAL REFLUX DISEASE
     Dosage: (ORAL)
     Route: 048
     Dates: start: 20091201
  14. KLONOPIN [Suspect]
     Indication: ANXIETY
     Dosage: (0.5 MG BID ORAL)
     Route: 048
  15. KLONOPIN [Suspect]
     Indication: GASTROOESOPHAGEAL REFLUX DISEASE
     Dosage: (0.5 MG BID ORAL)
     Route: 048
  16. KLONOPIN [Suspect]
     Indication: PANIC ATTACK
     Dosage: (0.5 MG BID ORAL)
     Route: 048
  17. PRILOSEC [Suspect]
     Dosage: (20 MG BID ORAL)
     Route: 048
  18. FLONASE [Suspect]
     Indication: HYPERSENSITIVITY
     Dosage: (50 MCG TWO SPRAYS PER NOSTRIL DAILY NASAL)
     Route: 045
  19. FLOVENT [Suspect]
     Indication: ASTHMA
     Dosage: (2 PUFFS OF 110 MCG TWICE A DAY  RESPIRATORY (INHALATION))
     Route: 055
  20. VENTOLIN [Suspect]
     Indication: ASTHMA
     Dosage: (90 MCGS TWO PUFFS EVERY TWO HOURS RESPIRATORY (INHALATION))
     Route: 055
  21. IMITREX [Suspect]
     Indication: MIGRAINE
     Dosage: (100 MG AS NEEDED ORAL)
     Route: 048
  22. NITROLINGUAL [Suspect]
     Indication: CHEST PAIN
     Dosage: (0.4 MG  SPRAY AS  NEEDED OTHER)
     Route: 050
  23. EPINEPHRINE [Suspect]
     Indication: HYPERSENSITIVITY
     Dosage: (TRANSDERMAL)
     Route: 062
  24. SIMVASTATIN [Suspect]
     Dosage: (ORAL)
     Route: 048
  25. MULTI-VITAMINS [Suspect]
     Dosage: (ORAL)
     Route: 048

REACTIONS (7)
  - ARTERIAL DISORDER [None]
  - ARTHRALGIA [None]
  - CARDIAC DISORDER [None]
  - DIABETIC NEUROPATHY [None]
  - FIBROMYALGIA [None]
  - MEMORY IMPAIRMENT [None]
  - MUSCLE SPASMS [None]
